FAERS Safety Report 8162051 (Version 3)
Quarter: 2012Q4

REPORT INFORMATION
  Report Type: 
  Country: JP (occurrence: JP)
  Receive Date: 20110929
  Receipt Date: 20121206
  Transmission Date: 20130627
  Serious: Yes (Death)
  Sender: FDA-Public Use
  Company Number: JP-GENZYME-THYM-1002786

PATIENT
  Age: 38 Year
  Sex: Female
  Weight: 50 kg

DRUGS (11)
  1. THYMOGLOBULIN [Suspect]
     Indication: BONE MARROW CONDITIONING REGIMEN
     Dosage: 125 mg, qd
     Route: 042
     Dates: start: 20091013, end: 20091013
  2. FLUDARA [Suspect]
     Indication: BONE MARROW CONDITIONING REGIMEN
     Dosage: 40 mg/body, qd
     Route: 065
     Dates: start: 20091016, end: 20091018
  3. CYCLOPHOSPHAMIDE [Suspect]
     Indication: BONE MARROW CONDITIONING REGIMEN
     Dosage: UNK
     Route: 065
     Dates: start: 20091016, end: 20091018
  4. HUMAN BLOOD COAGULATION FACTOR [Concomitant]
     Indication: FACTOR X DEFICIENCY
     Dosage: UNK
     Route: 065
     Dates: end: 20091020
  5. MICAFUNGIN SODIUM [Concomitant]
     Indication: INFECTION PROPHYLAXIS
     Dosage: UNK
     Route: 065
     Dates: start: 20091009
  6. RITUXIMAB [Concomitant]
     Indication: BONE MARROW CONDITIONING REGIMEN
     Dosage: UNK
     Route: 065
     Dates: start: 20091007, end: 20091014
  7. CICLOSPORIN [Concomitant]
     Indication: PROPHYLAXIS AGAINST GRAFT VERSUS HOST DISEASE
     Dosage: UNK
     Route: 065
     Dates: start: 20091019, end: 20091021
  8. METHYLPREDNISOLONE SODIUM SUCCINATE [Concomitant]
     Indication: PREMEDICATION
     Dosage: UNK
     Route: 065
     Dates: start: 20091015, end: 20091015
  9. RED BLOOD CELLS, CONCENTRATED [Concomitant]
     Indication: NON-HODGKIN^S LYMPHOMA
     Dosage: UNK
     Route: 065
     Dates: start: 20091019, end: 20091020
  10. PLATELETS, CONCENTRATED [Concomitant]
     Indication: NON-HODGKIN^S LYMPHOMA
     Dosage: UNK
     Route: 065
     Dates: start: 20091020, end: 20091021
  11. PLASMA, FRESH FROZEN [Concomitant]
     Indication: NON-HODGKIN^S LYMPHOMA
     Dosage: UNK
     Route: 065
     Dates: start: 20091020, end: 20091021

REACTIONS (3)
  - Hepatic vein occlusion [Fatal]
  - Febrile neutropenia [Fatal]
  - Pyrexia [Fatal]
